FAERS Safety Report 8478658 (Version 7)
Quarter: 2014Q2

REPORT INFORMATION
  Report Type: Report from Study
  Country: CA (occurrence: CA)
  Receive Date: 20120327
  Receipt Date: 20140627
  Transmission Date: 20141212
  Serious: Yes (Death, Other)
  Sender: FDA-Public Use
  Company Number: CA-ROCHE-1049347

PATIENT
  Age: 35 Year
  Sex: Female
  Weight: 52.66 kg

DRUGS (14)
  1. AVASTIN [Suspect]
     Indication: BREAST CANCER
     Route: 042
     Dates: start: 20111027
  2. AVASTIN [Suspect]
     Indication: METASTASES TO LIVER
     Route: 042
     Dates: start: 20111122
  3. AVASTIN [Suspect]
     Route: 042
     Dates: start: 20111215
  4. AVASTIN [Suspect]
     Route: 042
     Dates: start: 20120802
  5. AVASTIN [Suspect]
     Route: 042
     Dates: start: 20121017, end: 20121106
  6. XELODA [Suspect]
     Indication: PRODUCT USED FOR UNKNOWN INDICATION
     Route: 048
  7. DIPHENHYDRAMINE HCL [Concomitant]
     Indication: PREMEDICATION
     Route: 048
     Dates: start: 20120216, end: 20120216
  8. DIPHENHYDRAMINE HCL [Concomitant]
     Route: 048
     Dates: start: 20120823, end: 20120823
  9. DIPHENHYDRAMINE HCL [Concomitant]
     Route: 048
     Dates: start: 20120920, end: 20120920
  10. ACETAMINOPHEN [Concomitant]
     Indication: PREMEDICATION
     Route: 048
     Dates: start: 20120216, end: 20120216
  11. ACETAMINOPHEN [Concomitant]
     Route: 048
     Dates: start: 20120823, end: 20120823
  12. ACETAMINOPHEN [Concomitant]
     Route: 048
     Dates: start: 20120920, end: 20120920
  13. GRAVOL [Concomitant]
  14. METHYLPREDNISOLONE [Concomitant]
     Route: 042
     Dates: start: 20120216, end: 20120216

REACTIONS (8)
  - Malignant neoplasm progression [Fatal]
  - Hepatic neoplasm [Not Recovered/Not Resolved]
  - Arteriospasm coronary [Not Recovered/Not Resolved]
  - White blood cell count decreased [Unknown]
  - Red cell distribution width increased [Unknown]
  - Neutrophil count decreased [Unknown]
  - Gamma-glutamyltransferase increased [Unknown]
  - Platelet count decreased [Unknown]
